FAERS Safety Report 16952927 (Version 5)
Quarter: 2022Q2

REPORT INFORMATION
  Report Type: Report from Study
  Country: US (occurrence: US)
  Receive Date: 20191023
  Receipt Date: 20220405
  Transmission Date: 20220721
  Serious: Yes (Other)
  Sender: FDA-Public Use
  Company Number: None

PATIENT
  Sex: Female

DRUGS (3)
  1. GILENYA [Suspect]
     Active Substance: FINGOLIMOD HYDROCHLORIDE
     Indication: Multiple sclerosis
     Dosage: 0.5 MG, QD
     Route: 048
     Dates: start: 2012
  2. GILENYA [Suspect]
     Active Substance: FINGOLIMOD HYDROCHLORIDE
     Dosage: 0.5 MG, QD
     Route: 048
  3. GILENYA [Suspect]
     Active Substance: FINGOLIMOD HYDROCHLORIDE
     Dosage: 0.5 MG, QD
     Route: 048
     Dates: start: 20171111

REACTIONS (11)
  - Multiple sclerosis relapse [Unknown]
  - Memory impairment [Unknown]
  - Rhinorrhoea [Unknown]
  - Visual impairment [Unknown]
  - Scar [Unknown]
  - Fall [Unknown]
  - Dry mouth [Unknown]
  - Eye infection [Unknown]
  - Weight decreased [Unknown]
  - Herpes zoster [Unknown]
  - Sinusitis [Unknown]
